FAERS Safety Report 20013727 (Version 1)
Quarter: 2021Q4

REPORT INFORMATION
  Report Type: Spontaneous
  Country: US (occurrence: US)
  Receive Date: 20211029
  Receipt Date: 20211029
  Transmission Date: 20220303
  Serious: No
  Sender: FDA-Public Use
  Company Number: US-GSKCCFUS-CASE-01196994_AE-70012

PATIENT
  Sex: Female

DRUGS (1)
  1. ARNUITY ELLIPTA [Suspect]
     Active Substance: FLUTICASONE FUROATE
     Indication: Product used for unknown indication
     Dosage: 200 ?G, QD
     Route: 055
     Dates: start: 202109

REACTIONS (6)
  - Nervousness [Unknown]
  - Dyspnoea [Unknown]
  - Dizziness [Unknown]
  - Dysphonia [Unknown]
  - Wrong technique in device usage process [Unknown]
  - Product confusion [Unknown]

NARRATIVE: CASE EVENT DATE: 20210101
